FAERS Safety Report 9365887 (Version 1)
Quarter: 2013Q2

REPORT INFORMATION
  Report Type: Spontaneous
  Country: US (occurrence: US)
  Receive Date: 20130625
  Receipt Date: 20130625
  Transmission Date: 20140414
  Serious: Yes (Other)
  Sender: FDA-Public Use
  Company Number: PHEH2013US013565

PATIENT
  Sex: Female

DRUGS (2)
  1. EXELON PATCH [Suspect]
     Dosage: UNK UKN, UNK
     Route: 062
     Dates: start: 201304
  2. EXELON PATCH [Suspect]
     Dosage: UNK (DOSE INCREASED)
     Route: 062

REACTIONS (4)
  - Periorbital contusion [Unknown]
  - Gait disturbance [Unknown]
  - Feeling abnormal [Unknown]
  - Lip erosion [Unknown]
